FAERS Safety Report 22011972 (Version 1)
Quarter: 2023Q1

REPORT INFORMATION
  Report Type: Spontaneous
  Country: CN (occurrence: CN)
  Receive Date: 20230220
  Receipt Date: 20230220
  Transmission Date: 20230417
  Serious: Yes (Hospitalization, Other)
  Sender: FDA-Public Use
  Company Number: CN-PFIZER INC-PV202300030529

PATIENT
  Age: 67 Year
  Sex: Male
  Weight: 52 kg

DRUGS (1)
  1. SUNITINIB MALATE [Suspect]
     Active Substance: SUNITINIB MALATE
     Indication: Renal cancer
     Dosage: 50 MG, 1X/DAY
     Route: 048
     Dates: start: 20220802, end: 20221126

REACTIONS (2)
  - Cholecystitis acute [Recovered/Resolved]
  - Cholelithiasis [Recovered/Resolved]

NARRATIVE: CASE EVENT DATE: 20221125
